FAERS Safety Report 7764206-6 (Version None)
Quarter: 2011Q3

REPORT INFORMATION
  Report Type: 
  Country: None (occurrence: None)
  Receive Date: 20110921
  Receipt Date: 20110919
  Transmission Date: 20111222
  Serious: Yes (Hospitalization)
  Sender: FDA-Public Use
  Company Number: GXKR2011DE02829

PATIENT
  Sex: Male

DRUGS (8)
  1. MOVIPREP [Concomitant]
     Dosage: UNK DF, UNK
     Route: 048
     Dates: start: 20100927
  2. MIRTAZAPINE [Suspect]
     Dosage: 15 MG, QD
     Route: 048
     Dates: start: 20100924, end: 20100926
  3. IBUPROFEN TABLETS [Suspect]
     Dosage: 400 MG, QD
     Route: 048
     Dates: start: 20101102
  4. MIRTAZAPINE [Suspect]
     Dosage: 30 MG, QD
     Route: 048
     Dates: start: 20100927, end: 20101126
  5. OMEPRAZOLE [Suspect]
     Dosage: 20 MG, QD
     Dates: start: 20101118
  6. HYDROCHLOROTHIAZIDE [Suspect]
     Dosage: 6.25 MG, QD
     Route: 048
     Dates: start: 20101021
  7. DIPIPERON [Concomitant]
     Dosage: 40 MG, UNK
     Route: 048
     Dates: start: 20101119, end: 20101129
  8. UBRETID [Concomitant]
     Dosage: 5 MG, UNK
     Route: 048
     Dates: start: 20101029

REACTIONS (1)
  - PANCYTOPENIA [None]
